FAERS Safety Report 18806243 (Version 2)
Quarter: 2021Q2

REPORT INFORMATION
  Report Type: Spontaneous
  Country: US (occurrence: US)
  Receive Date: 20210128
  Receipt Date: 20210601
  Transmission Date: 20210717
  Serious: Yes (Hospitalization, Other)
  Sender: FDA-Public Use
  Company Number: US-GILEAD-2021-0513421

PATIENT
  Age: 59 Year
  Sex: Male

DRUGS (52)
  1. ATRIPLA [Suspect]
     Active Substance: EFAVIRENZ\EMTRICITABINE\TENOFOVIR DISOPROXIL FUMARATE
     Dosage: UNK
     Route: 065
     Dates: start: 20130128, end: 20150305
  2. CLINDAMYCIN. [Concomitant]
     Active Substance: CLINDAMYCIN
  3. GAVILYTE ? C [Concomitant]
     Active Substance: POLYETHYLENE GLYCOL 3350\POTASSIUM CHLORIDE\SODIUM BICARBONATE\SODIUM CHLORIDE\SODIUM SULFATE
  4. IBUPROFEN. [Concomitant]
     Active Substance: IBUPROFEN
  5. LEVOCETRIZINE HYDROCHLORIDE [Concomitant]
  6. ASPIRIN 81 [Concomitant]
     Active Substance: ASPIRIN
  7. METHYLPREDNISOLONE. [Concomitant]
     Active Substance: METHYLPREDNISOLONE
  8. MORPHINE [Concomitant]
     Active Substance: MORPHINE
  9. NOVOLOG [Concomitant]
     Active Substance: INSULIN ASPART
  10. OSELTAMIVIR [Concomitant]
     Active Substance: OSELTAMIVIR
  11. OXYCODONE [Concomitant]
     Active Substance: OXYCODONE
  12. SULFAMETHOXAZOLE [Concomitant]
     Active Substance: SULFAMETHOXAZOLE
  13. TIVICAY [Concomitant]
     Active Substance: DOLUTEGRAVIR SODIUM
  14. AFLURIA NOS [Concomitant]
     Active Substance: INFLUENZA VIRUS VACCINE TRIVALENT TYPE A+B AFLURIA
  15. FLUCELVAX NOS [Concomitant]
     Active Substance: INFLUENZA A VIRUS A/BRISBANE/10/2010 (H1N1) ANTIGEN (MDCK CELL DERIVED, PROPIOLACTONE INACTIVATED)\INFLUENZA A VIRUS A/VICTORIA/361/2011 IVR-165 (H3N2) ANTIGEN (MDCK CELL DERIVED, PROPIOLACTONE INACTIVATED)\INFLUENZA B VIRUS B/WISCONSIN/1/2010) ANTIGEN (MDCK CELL DERIVED, PROPIOLACTONE INACTIVATED)
  16. MIRTAZAPINE. [Concomitant]
     Active Substance: MIRTAZAPINE
  17. TRESIBA [Concomitant]
     Active Substance: INSULIN DEGLUDEC
  18. VITAMIN D [COLECALCIFEROL] [Concomitant]
     Active Substance: CHOLECALCIFEROL
  19. DESCOVY [Concomitant]
     Active Substance: EMTRICITABINE\TENOFOVIR ALAFENAMIDE FUMARATE
  20. ACETAMINOPHEN. [Concomitant]
     Active Substance: ACETAMINOPHEN
  21. CYCLOBENZAPRINE. [Concomitant]
     Active Substance: CYCLOBENZAPRINE
  22. FLUARIX NOS [Concomitant]
     Active Substance: INFLUENZA VIRUS VACCINE
  23. IRON [Concomitant]
     Active Substance: IRON
  24. POTASSIUM [Concomitant]
     Active Substance: POTASSIUM
  25. TRIAMCINOLONE [Concomitant]
     Active Substance: TRIAMCINOLONE
  26. ATRIPLA [Suspect]
     Active Substance: EFAVIRENZ\EMTRICITABINE\TENOFOVIR DISOPROXIL FUMARATE
     Indication: HIV INFECTION
     Dosage: UNK
     Route: 048
     Dates: start: 2006
  27. ALBUTEROL [SALBUTAMOL] [Concomitant]
     Active Substance: ALBUTEROL
  28. BUPROPION. [Concomitant]
     Active Substance: BUPROPION
  29. CRESTOR [Concomitant]
     Active Substance: ROSUVASTATIN CALCIUM
  30. FLUTICASONE. [Concomitant]
     Active Substance: FLUTICASONE
  31. LOVAZA [Concomitant]
     Active Substance: OMEGA-3-ACID ETHYL ESTERS
  32. ROSUVASTATIN. [Concomitant]
     Active Substance: ROSUVASTATIN
  33. SYMBICORT [Concomitant]
     Active Substance: BUDESONIDE\FORMOTEROL FUMARATE DIHYDRATE
  34. AZITHROMYCIN ANHYDROUS. [Concomitant]
     Active Substance: AZITHROMYCIN ANHYDROUS
  35. OMEPRAZOLE. [Concomitant]
     Active Substance: OMEPRAZOLE
  36. QUETIAPINE. [Concomitant]
     Active Substance: QUETIAPINE
  37. TIZANIDINE. [Concomitant]
     Active Substance: TIZANIDINE
  38. CEFUROXIME. [Concomitant]
     Active Substance: CEFUROXIME
  39. FENOFIBRATE. [Concomitant]
     Active Substance: FENOFIBRATE
  40. GLYBURIDE. [Concomitant]
     Active Substance: GLYBURIDE
  41. HYDROCHLOROTHIAZIDE. [Concomitant]
     Active Substance: HYDROCHLOROTHIAZIDE
  42. OMEGA 100 [Concomitant]
  43. ONE TOUCH [Concomitant]
     Active Substance: DEXTROSE
  44. VENTOLIN [Concomitant]
     Active Substance: ALBUTEROL SULFATE
  45. WELCHOL [Concomitant]
     Active Substance: COLESEVELAM HYDROCHLORIDE
  46. FLUOXETINE [Concomitant]
     Active Substance: FLUOXETINE HYDROCHLORIDE
  47. FLUZONE [FLUCONAZOLE] [Concomitant]
     Active Substance: FLUCONAZOLE
  48. LEVOFLOXACIN. [Concomitant]
     Active Substance: LEVOFLOXACIN
  49. LISINOPRIL. [Concomitant]
     Active Substance: LISINOPRIL
  50. LYRICA [Concomitant]
     Active Substance: PREGABALIN
  51. MECLIZINE HCL [Concomitant]
     Active Substance: MECLIZINE HYDROCHLORIDE
  52. RAMIPRIL. [Concomitant]
     Active Substance: RAMIPRIL

REACTIONS (7)
  - Chronic kidney disease [Not Recovered/Not Resolved]
  - Anxiety [Not Recovered/Not Resolved]
  - Renal impairment [Unknown]
  - Anhedonia [Not Recovered/Not Resolved]
  - Depression [Not Recovered/Not Resolved]
  - Pain [Not Recovered/Not Resolved]
  - Emotional distress [Not Recovered/Not Resolved]

NARRATIVE: CASE EVENT DATE: 201808
